FAERS Safety Report 16281898 (Version 1)
Quarter: 2019Q2

REPORT INFORMATION
  Report Type: Spontaneous
  Country: US (occurrence: US)
  Receive Date: 20190507
  Receipt Date: 20190507
  Transmission Date: 20190711
  Serious: Yes (Other)
  Sender: FDA-Public Use
  Company Number: US-PFIZER INC-2019193202

PATIENT
  Age: 78 Year
  Sex: Female
  Weight: 79.4 kg

DRUGS (13)
  1. TRAMADOL. [Concomitant]
     Active Substance: TRAMADOL
     Dosage: UNK
  2. ESCITALOPRAM [Concomitant]
     Active Substance: ESCITALOPRAM OXALATE
     Dosage: UNK
  3. DICLOFENAC [Concomitant]
     Active Substance: DICLOFENAC
     Dosage: UNK
  4. COMBIGAN [Concomitant]
     Active Substance: BRIMONIDINE TARTRATE\TIMOLOL MALEATE
     Dosage: UNK
  5. ATORVASTATIN [Concomitant]
     Active Substance: ATORVASTATIN
     Dosage: UNK
  6. DUREZOL [Concomitant]
     Active Substance: DIFLUPREDNATE
     Dosage: UNK
  7. ARIMIDEX [Concomitant]
     Active Substance: ANASTROZOLE
     Dosage: UNK
  8. LYRICA [Concomitant]
     Active Substance: PREGABALIN
     Dosage: UNK
  9. GLIPIZIDE. [Concomitant]
     Active Substance: GLIPIZIDE
     Dosage: UNK
  10. DOXEPIN [Concomitant]
     Active Substance: DOXEPIN
     Dosage: UNK
  11. AMLODIPINE [Concomitant]
     Active Substance: AMLODIPINE BESYLATE
     Dosage: UNK
  12. IBRANCE [Suspect]
     Active Substance: PALBOCICLIB
     Indication: BREAST CANCER
     Dosage: 75 MG, CYCLIC (ONCE DAILY, 3 WEEKS ON/1 WEEK OFF)
     Route: 048
     Dates: start: 20190308, end: 20190502
  13. TRADJENTA [Concomitant]
     Active Substance: LINAGLIPTIN
     Dosage: UNK

REACTIONS (1)
  - Neutropenia [Unknown]
